FAERS Safety Report 5407634-6 (Version None)
Quarter: 2007Q3

REPORT INFORMATION
  Report Type: 
  Country: None (occurrence: None)
  Receive Date: 20070803
  Receipt Date: 20070719
  Transmission Date: 20080115
  Serious: Yes (Other)
  Sender: FDA-Public Use
  Company Number: 2007S1000287

PATIENT
  Sex: Male

DRUGS (3)
  1. CUBICIN [Suspect]
     Indication: ABSCESS
     Dosage: 6 MG/KG; Q24H; IV
     Route: 042
  2. CUBICIN [Suspect]
     Indication: STAPHYLOCOCCAL BACTERAEMIA
     Dosage: 6 MG/KG; Q24H; IV
     Route: 042
  3. VANCOMYCIN [Concomitant]

REACTIONS (2)
  - MUSCLE ATROPHY [None]
  - MYOPATHY [None]
